FAERS Safety Report 9194958 (Version 1)
Quarter: 2013Q1

REPORT INFORMATION
  Report Type: Spontaneous
  Country: US (occurrence: US)
  Receive Date: 20130328
  Receipt Date: 20130328
  Transmission Date: 20140127
  Serious: No
  Sender: FDA-Public Use
  Company Number: US-ALLERGAN-1213883US

PATIENT
  Age: 59 Year
  Sex: Female

DRUGS (3)
  1. LATISSE 0.03% [Suspect]
     Indication: GROWTH OF EYELASHES
     Dosage: UNK UNK, QHS
     Route: 061
     Dates: start: 2011
  2. DIURETIC [Concomitant]
     Indication: MENOPAUSAL SYMPTOMS
     Dosage: UNK, QD
     Route: 048
  3. RESTASIS? [Concomitant]
     Indication: DRY EYE
     Dosage: 2 GTT, BID
     Route: 047

REACTIONS (4)
  - Wrong technique in drug usage process [Unknown]
  - Incorrect dose administered [Unknown]
  - Pain [Recovered/Resolved]
  - Trichorrhexis [Recovered/Resolved]
